FAERS Safety Report 4595452-0 (Version None)
Quarter: 2005Q1

REPORT INFORMATION
  Report Type: 
  Country: None (occurrence: None)
  Receive Date: 20050224
  Receipt Date: 20050202
  Transmission Date: 20050727
  Serious: No
  Sender: FDA-Public Use
  Company Number: USA050289796

PATIENT
  Age: 72 Year
  Sex: Female
  Weight: 87 kg

DRUGS (4)
  1. CYMBALTA [Suspect]
     Indication: DEPRESSION
     Dosage: 30 MG
  2. WELLBUTRIN SR [Concomitant]
  3. PROPRANOLOL [Concomitant]
  4. KLONOPIN [Concomitant]

REACTIONS (3)
  - BILIARY NEOPLASM [None]
  - DRUG INTERACTION [None]
  - HEPATIC STEATOSIS [None]
